FAERS Safety Report 9552502 (Version 1)
Quarter: 2013Q3

REPORT INFORMATION
  Report Type: Spontaneous
  Country: US (occurrence: None)
  Receive Date: 20130924
  Receipt Date: 20130924
  Transmission Date: 20140515
  Serious: Yes (Other)
  Sender: FDA-Public Use
  Company Number: None

PATIENT
  Age: 48 Year
  Sex: Female

DRUGS (1)
  1. GLIPIZIDE [Suspect]
     Dates: start: 2011

REACTIONS (3)
  - Androgenetic alopecia [None]
  - Contusion [None]
  - Scar [None]
